FAERS Safety Report 24192654 (Version 4)
Quarter: 2024Q3

REPORT INFORMATION
  Report Type: Report from Study
  Country: JP (occurrence: JP)
  Receive Date: 20240809
  Receipt Date: 20240915
  Transmission Date: 20241017
  Serious: Yes (Death, Hospitalization, Other)
  Sender: ALEXION PHARMACEUTICALS
  Company Number: JP-AstraZeneca-CH-00677639A

PATIENT
  Sex: Female

DRUGS (1)
  1. ULTOMIRIS [Suspect]
     Active Substance: RAVULIZUMAB-CWVZ
     Indication: Neuromyelitis optica spectrum disorder
     Dosage: UNK
     Route: 042

REACTIONS (1)
  - COVID-19 pneumonia [Fatal]
